FAERS Safety Report 17448651 (Version 3)
Quarter: 2020Q1

REPORT INFORMATION
  Report Type: Spontaneous
  Country: RO (occurrence: RO)
  Receive Date: 20200224
  Receipt Date: 20200227
  Transmission Date: 20200409
  Serious: Yes (Other)
  Sender: FDA-Public Use
  Company Number: RO-IPSEN BIOPHARMACEUTICALS, INC.-2014-0235

PATIENT
  Age: 56 Year
  Sex: Female

DRUGS (2)
  1. BOTULINUM TOXIN TYPE A [Suspect]
     Active Substance: BOTULINUM TOXIN TYPE A
     Indication: OFF LABEL USE
  2. BOTULINUM TOXIN TYPE A [Suspect]
     Active Substance: BOTULINUM TOXIN TYPE A
     Indication: HYPERTONIC BLADDER
     Dosage: 500 UNITS
     Route: 030

REACTIONS (5)
  - Urinary tract infection [Unknown]
  - Bladder pain [Unknown]
  - Off label use [Unknown]
  - Haematuria [Recovered/Resolved]
  - Urinary retention [Recovered/Resolved]
